FAERS Safety Report 17823990 (Version 1)
Quarter: 2020Q2

REPORT INFORMATION
  Report Type: Spontaneous
  Country: US (occurrence: US)
  Receive Date: 20200526
  Receipt Date: 20200526
  Transmission Date: 20200714
  Serious: No
  Sender: FDA-Public Use
  Company Number: US-PFIZER INC-2020159478

PATIENT
  Age: 57 Year
  Sex: Female

DRUGS (6)
  1. GENOTROPIN [Suspect]
     Active Substance: SOMATROPIN
     Dosage: 0.7 MG, DAILY
  2. GENOTROPIN [Suspect]
     Active Substance: SOMATROPIN
     Dosage: 0.7 MG, DAILY
  3. GENOTROPIN [Suspect]
     Active Substance: SOMATROPIN
     Dosage: 0.6 MG, DAILY
  4. GENOTROPIN [Suspect]
     Active Substance: SOMATROPIN
     Dosage: 0.6 MG, DAILY
  5. GENOTROPIN [Suspect]
     Active Substance: SOMATROPIN
     Dosage: 5 MG
  6. GENOTROPIN [Suspect]
     Active Substance: SOMATROPIN
     Dosage: 5 MG

REACTIONS (7)
  - Insomnia [Unknown]
  - Wrong device used [Unknown]
  - Off label use [Unknown]
  - Device use confusion [Unknown]
  - Device leakage [Unknown]
  - Intentional product use issue [Unknown]
  - Incorrect dose administered [Unknown]

NARRATIVE: CASE EVENT DATE: 202005
